FAERS Safety Report 7459836-5 (Version None)
Quarter: 2011Q2

REPORT INFORMATION
  Report Type: 
  Country: None (occurrence: None)
  Receive Date: 20110505
  Receipt Date: 20110504
  Transmission Date: 20111010
  Serious: Yes (Death, Hospitalization)
  Sender: FDA-Public Use
  Company Number: IT-ABBOTT-11P-083-0722441-00

PATIENT
  Sex: Female
  Weight: 50 kg

DRUGS (4)
  1. EPIVIR [Suspect]
     Indication: PRODUCT USED FOR UNKNOWN INDICATION
     Dates: start: 20061031
  2. SUSTIVA [Suspect]
     Indication: PRODUCT USED FOR UNKNOWN INDICATION
     Dates: start: 20061031
  3. PREZISTA [Suspect]
     Indication: HIV INFECTION
     Dates: start: 20061031
  4. NORVIR [Suspect]
     Indication: HIV INFECTION
     Dates: start: 20061031

REACTIONS (1)
  - DYSPNOEA [None]
